FAERS Safety Report 5495409-1 (Version None)
Quarter: 2007Q4

REPORT INFORMATION
  Report Type: 
  Country: None (occurrence: None)
  Receive Date: 20071024
  Receipt Date: 20070904
  Transmission Date: 20080405
  Serious: No
  Sender: FDA-Public Use
  Company Number: US-AMGEN-KDL241552

PATIENT
  Sex: Male

DRUGS (2)
  1. KEPIVANCE [Suspect]
     Indication: BONE MARROW TRANSPLANT
  2. MELPHALAN [Concomitant]

REACTIONS (2)
  - NAUSEA [None]
  - VOMITING [None]
